FAERS Safety Report 16202134 (Version 1)
Quarter: 2019Q2

REPORT INFORMATION
  Report Type: Spontaneous
  Country: US (occurrence: US)
  Receive Date: 20190312
  Receipt Date: 20190312
  Transmission Date: 20190711
  Serious: Yes (Other)
  Sender: FDA-Public Use
  Company Number: None

PATIENT
  Age: 72 Year
  Sex: Male

DRUGS (1)
  1. ERLEADA [Suspect]
     Active Substance: APALUTAMIDE
     Dates: start: 20190107, end: 20190312

REACTIONS (2)
  - Therapy change [None]
  - Laboratory test abnormal [None]

NARRATIVE: CASE EVENT DATE: 20190312
